FAERS Safety Report 19455616 (Version 1)
Quarter: 2021Q2

REPORT INFORMATION
  Report Type: Spontaneous
  Country: US (occurrence: US)
  Receive Date: 20210623
  Receipt Date: 20210623
  Transmission Date: 20210717
  Serious: Yes (Hospitalization)
  Sender: FDA-Public Use
  Company Number: None

PATIENT
  Age: 34 Year
  Sex: Female

DRUGS (7)
  1. DIMETHYL FUMERATE 240 MG [Suspect]
     Active Substance: DIMETHYL FUMARATE
     Indication: MULTIPLE SCLEROSIS
     Route: 048
     Dates: start: 20200930
  2. LIDOCAINE. [Concomitant]
     Active Substance: LIDOCAINE
  3. HYDROCORT [Concomitant]
  4. BUPROPN HCL [Concomitant]
     Active Substance: BUPROPION HYDROCHLORIDE
  5. GPN LAXATIVE [Concomitant]
  6. DOXYCYC [Concomitant]
  7. PHENTERMINE. [Concomitant]
     Active Substance: PHENTERMINE

REACTIONS (2)
  - Therapy interrupted [None]
  - Hospitalisation [None]

NARRATIVE: CASE EVENT DATE: 20210611
